FAERS Safety Report 13029641 (Version 1)
Quarter: 2016Q4

REPORT INFORMATION
  Report Type: Report from Study
  Country: None (occurrence: US)
  Receive Date: 20161215
  Receipt Date: 20161215
  Transmission Date: 20170207
  Serious: No
  Sender: FDA-Public Use
  Company Number: US-BIOVITRUM-2015US0194

PATIENT
  Sex: Male
  Weight: 27.92 kg

DRUGS (7)
  1. ZYRTEC [Concomitant]
     Active Substance: CETIRIZINE HYDROCHLORIDE
     Indication: HYPERSENSITIVITY
     Dosage: AS NEEDED
  2. SINGULAIR [Concomitant]
     Active Substance: MONTELUKAST SODIUM
     Indication: HYPERSENSITIVITY
     Dosage: AS NEEDED
  3. FLOVENT [Concomitant]
     Active Substance: FLUTICASONE PROPIONATE
     Indication: HYPERSENSITIVITY
     Dosage: AS NEEDED
  4. ZOPENEX [Concomitant]
     Indication: HYPERSENSITIVITY
     Dosage: AS NEEDED
  5. KINERET [Suspect]
     Active Substance: ANAKINRA
  6. TRIMINICLONE [Concomitant]
     Indication: ECZEMA
     Dosage: AS NEEDED
     Route: 061
  7. NASONEX [Concomitant]
     Active Substance: MOMETASONE FUROATE
     Indication: HYPERSENSITIVITY
     Dosage: AS NEEDED

REACTIONS (3)
  - Injection site pain [Unknown]
  - Injection site reaction [Unknown]
  - Drug administered in wrong device [Unknown]
